FAERS Safety Report 9032324 (Version 1)
Quarter: 2013Q1

REPORT INFORMATION
  Report Type: Report from Study
  Country: DE (occurrence: DE)
  Receive Date: 20130122
  Receipt Date: 20130122
  Transmission Date: 20140127
  Serious: Yes (Other)
  Sender: FDA-Public Use
  Company Number: DE-BAYER-2013-007052

PATIENT
  Sex: Female

DRUGS (1)
  1. BETAFERON [Suspect]

REACTIONS (3)
  - Loss of consciousness [None]
  - Dizziness [None]
  - Skin reaction [None]
